FAERS Safety Report 4992758-8 (Version None)
Quarter: 2006Q1

REPORT INFORMATION
  Report Type: 
  Country: None (occurrence: None)
  Receive Date: 20060315
  Receipt Date: 20050216
  Transmission Date: 20060701
  Serious: Yes (Other)
  Sender: FDA-Public Use
  Company Number: USA050187480

PATIENT
  Age: 67 Year
  Sex: Male

DRUGS (2)
  1. GEMZAR [Suspect]
     Indication: BLADDER CANCER
     Dosage: 1000 MG/M2,  INTRAVENOUS
     Route: 042
     Dates: start: 20041201, end: 20041201
  2. CARBOPLATIN [Concomitant]

REACTIONS (6)
  - CANDIDIASIS [None]
  - DIARRHOEA [None]
  - GENERALISED OEDEMA [None]
  - PLATELET COUNT DECREASED [None]
  - RASH [None]
  - RENAL FAILURE [None]
